FAERS Safety Report 25819823 (Version 1)
Quarter: 2025Q3

REPORT INFORMATION
  Report Type: Spontaneous
  Country: US (occurrence: US)
  Receive Date: 20250918
  Receipt Date: 20250918
  Transmission Date: 20251021
  Serious: No
  Sender: ALEXION PHARMACEUTICALS
  Company Number: US-AstraZeneca-CH-00948766A

PATIENT
  Sex: Female

DRUGS (3)
  1. SOLIRIS [Suspect]
     Active Substance: ECULIZUMAB
     Indication: Myasthenia gravis
     Dates: start: 202301, end: 202508
  2. SOLIRIS [Suspect]
     Active Substance: ECULIZUMAB
     Dates: start: 202012, end: 202208
  3. ULTOMIRIS [Suspect]
     Active Substance: RAVULIZUMAB-CWVZ
     Indication: Myasthenia gravis
     Dates: start: 202208, end: 202301

REACTIONS (2)
  - Restlessness [Unknown]
  - Drug ineffective [Unknown]
